FAERS Safety Report 4814634-3 (Version None)
Quarter: 2005Q4

REPORT INFORMATION
  Report Type: 
  Country: None (occurrence: None)
  Receive Date: 20051028
  Receipt Date: 20051013
  Transmission Date: 20060501
  Serious: Yes (Hospitalization)
  Sender: FDA-Public Use
  Company Number: FR-GLAXOSMITHKLINE-B0397366B

PATIENT
  Age: 23 Year
  Sex: Male

DRUGS (6)
  1. ULTIVA [Suspect]
     Route: 042
     Dates: start: 20050831, end: 20050831
  2. DIPRIVAN [Suspect]
     Route: 065
     Dates: start: 20050831, end: 20050831
  3. PERFALGAN [Suspect]
     Route: 065
     Dates: start: 20050831, end: 20050831
  4. CEFAZOLIN SODIUM [Suspect]
     Indication: DRUG USE FOR UNKNOWN INDICATION
     Route: 065
     Dates: start: 20050831
  5. MORPHINE [Suspect]
     Route: 065
     Dates: start: 20050831, end: 20050831
  6. AUGMENTIN '125' [Concomitant]
     Indication: DRUG USE FOR UNKNOWN INDICATION
     Route: 065

REACTIONS (9)
  - ALANINE AMINOTRANSFERASE INCREASED [None]
  - ASPARTATE AMINOTRANSFERASE INCREASED [None]
  - BILIRUBIN CONJUGATED INCREASED [None]
  - BLOOD ALKALINE PHOSPHATASE INCREASED [None]
  - BLOOD BILIRUBIN INCREASED [None]
  - GAMMA-GLUTAMYLTRANSFERASE INCREASED [None]
  - HEPATITIS [None]
  - JAUNDICE [None]
  - OEDEMATOUS PANCREATITIS [None]
